FAERS Safety Report 24342015 (Version 1)
Quarter: 2024Q3

REPORT INFORMATION
  Report Type: Spontaneous
  Country: QA (occurrence: QA)
  Receive Date: 20240920
  Receipt Date: 20240920
  Transmission Date: 20241017
  Serious: Yes (Hospitalization, Other)
  Sender: Haleon PLC
  Company Number: QA-HALEON-2197441

PATIENT
  Age: 22 Year
  Sex: Male

DRUGS (1)
  1. IBUPROFEN [Suspect]
     Active Substance: IBUPROFEN
     Indication: Pyrexia

REACTIONS (9)
  - Rhabdomyolysis [Unknown]
  - Acute kidney injury [Recovered/Resolved]
  - Abdominal pain [Unknown]
  - Urine analysis abnormal [Unknown]
  - Urine output decreased [Unknown]
  - Oliguria [Unknown]
  - Hypertension [Unknown]
  - Myalgia [Unknown]
  - Pyrexia [Unknown]
